FAERS Safety Report 18384561 (Version 1)
Quarter: 2020Q4

REPORT INFORMATION
  Report Type: Spontaneous
  Country: US (occurrence: US)
  Receive Date: 20201014
  Receipt Date: 20201014
  Transmission Date: 20210114
  Serious: No
  Sender: FDA-Public Use
  Company Number: US-KALEO, INC.-2019KL000176

PATIENT
  Age: 33 Year
  Sex: Female

DRUGS (2)
  1. AUVI-Q [Suspect]
     Active Substance: EPINEPHRINE
     Indication: ANAPHYLACTIC REACTION
     Dates: start: 20191113, end: 20191113
  2. AUVI-Q [Suspect]
     Active Substance: EPINEPHRINE
     Dates: start: 20191113, end: 20191113

REACTIONS (7)
  - Vision blurred [Recovered/Resolved]
  - Occupational exposure to product [Recovered/Resolved]
  - Headache [Not Recovered/Not Resolved]
  - Parosmia [Recovered/Resolved]
  - Stress [Recovered/Resolved]
  - Dizziness [Recovered/Resolved]
  - Heart rate increased [Recovered/Resolved]

NARRATIVE: CASE EVENT DATE: 20191113
